FAERS Safety Report 18642558 (Version 2)
Quarter: 2022Q1

REPORT INFORMATION
  Report Type: Other
  Country: GB (occurrence: None)
  Receive Date: 20201221
  Receipt Date: 20220208
  Transmission Date: 20220424
  Serious: Yes (Other)
  Sender: FDA-Public Use
  Company Number: GB-ROCHE-1696708

PATIENT
  Sex: Female

DRUGS (1)
  1. TOCILIZUMAB [Suspect]
     Active Substance: TOCILIZUMAB
     Indication: Rheumatoid arthritis
     Route: 058
     Dates: start: 20141211

REACTIONS (15)
  - Bedridden [Unknown]
  - Mental disorder [Unknown]
  - Confusional state [Unknown]
  - Malaise [Unknown]
  - Infection [Unknown]
  - Localised infection [Unknown]
  - Cellulitis [Unknown]
  - Eye infection [Unknown]
  - Lower respiratory tract infection [Unknown]
  - Dyspnoea [Unknown]
  - Wheezing [Unknown]
  - Asthma [Unknown]
  - Ill-defined disorder [Unknown]
  - Chronic obstructive pulmonary disease [Unknown]
  - Suicidal ideation [Unknown]
